FAERS Safety Report 15200479 (Version 1)
Quarter: 2018Q3

REPORT INFORMATION
  Report Type: Spontaneous
  Country: SE (occurrence: SE)
  Receive Date: 20180726
  Receipt Date: 20180726
  Transmission Date: 20181010
  Serious: Yes (Hospitalization)
  Sender: FDA-Public Use
  Company Number: SE-TEVA-2018-SE-930832

PATIENT
  Age: 61 Year
  Sex: Male

DRUGS (3)
  1. WARAN [Concomitant]
     Active Substance: WARFARIN SODIUM
     Route: 065
  2. STESOLID [Suspect]
     Active Substance: DIAZEPAM
     Indication: HEMIPARESIS
     Dosage: 10 MILLIGRAM DAILY; 1 TABLETT TILL NATTEN
     Route: 065
     Dates: start: 20180122, end: 20180206
  3. PARAFLEX [Suspect]
     Active Substance: CHLORZOXAZONE
     Indication: HEMIPARESIS
     Dosage: 1 TABLETT TILL NATTEN
     Route: 065
     Dates: start: 20180122

REACTIONS (1)
  - Muscular weakness [Not Recovered/Not Resolved]

NARRATIVE: CASE EVENT DATE: 201801
